FAERS Safety Report 8980561 (Version 4)
Quarter: 2013Q1

REPORT INFORMATION
  Report Type: Report from Study
  Country: GB (occurrence: GB)
  Receive Date: 20121221
  Receipt Date: 20130117
  Transmission Date: 20140127
  Serious: Yes (Other)
  Sender: FDA-Public Use
  Company Number: GB-AMGEN-GBRCT2012081436

PATIENT
  Age: 23 Year
  Sex: Female

DRUGS (3)
  1. DENOSUMAB [Suspect]
     Indication: BONE GIANT CELL TUMOUR
     Dosage: 120 MG, QMO
     Route: 058
     Dates: start: 20110705
  2. MICROGYNON 30 [Concomitant]
     Dosage: UNK
     Dates: start: 201205
  3. ERGOCALCIFEROL [Concomitant]
     Dosage: 15 MG, QD

REACTIONS (1)
  - Osteonecrosis [Not Recovered/Not Resolved]
